FAERS Safety Report 8361110-X (Version None)
Quarter: 2012Q2

REPORT INFORMATION
  Report Type: 
  Country: None (occurrence: None)
  Receive Date: 20120515
  Receipt Date: 20120508
  Transmission Date: 20120825
  Serious: Yes (Hospitalization, Other)
  Sender: FDA-Public Use
  Company Number: US-BAYER-2012-024546

PATIENT
  Age: 21 Year
  Sex: Female
  Weight: 63.039 kg

DRUGS (3)
  1. YAZ [Suspect]
  2. IBUPROFEN [Concomitant]
  3. LEVAQUIN [Concomitant]

REACTIONS (5)
  - ANXIETY [None]
  - ANHEDONIA [None]
  - PELVIC VENOUS THROMBOSIS [None]
  - PAIN [None]
  - PULMONARY EMBOLISM [None]
